FAERS Safety Report 9254962 (Version 2)
Quarter: 2013Q2

REPORT INFORMATION
  Report Type: Spontaneous
  Country: VE (occurrence: VE)
  Receive Date: 20130425
  Receipt Date: 20130508
  Transmission Date: 20140414
  Serious: No
  Sender: FDA-Public Use
  Company Number: VE-PFIZER INC-2013128505

PATIENT
  Age: 81 Year
  Sex: Female

DRUGS (1)
  1. TRANGOREX [Suspect]
     Dosage: UNK

REACTIONS (1)
  - Transaminases increased [Unknown]
